FAERS Safety Report 8535715-7 (Version None)
Quarter: 2012Q3

REPORT INFORMATION
  Report Type: 
  Country: None (occurrence: None)
  Receive Date: 20120725
  Receipt Date: 20120720
  Transmission Date: 20120928
  Serious: No
  Sender: FDA-Public Use
  Company Number: US-PFIZER INC-2012163124

PATIENT
  Sex: Male
  Weight: 72.562 kg

DRUGS (11)
  1. REFRESH [Concomitant]
  2. SUTENT [Suspect]
     Indication: METASTATIC RENAL CELL CARCINOMA
     Dosage: 50 MG, CYCLIC (50MG FOR THE FIRST 42 DAY CYCLE)
     Dates: start: 20120626
  3. PROVENTIL GENTLEHALER [Concomitant]
     Dosage: UNK
  4. NASONEX [Concomitant]
     Dosage: UNK, AS NEEDED
  5. ASCORBIC ACID [Concomitant]
     Dosage: UNK
  6. SYMBICORT [Concomitant]
     Indication: ASTHMA
     Dosage: UNK
  7. LOTEMAX [Concomitant]
     Dosage: UNK
  8. NEXAVAR [Suspect]
     Indication: METASTATIC RENAL CELL CARCINOMA
     Dosage: UNK
     Dates: start: 20120424, end: 20120521
  9. MUCINEX [Concomitant]
     Dosage: UNK, DAILY
  10. CHONDROITIN/GLUCOSAMINE [Concomitant]
     Indication: ARTHRITIS
     Dosage: UNK
  11. MOBIC [Concomitant]
     Dosage: UNK, EVERY PM

REACTIONS (10)
  - LACRIMATION INCREASED [None]
  - PAIN [None]
  - ASTHENIA [None]
  - ARTHRITIS [None]
  - DIZZINESS [None]
  - MUSCULOSKELETAL PAIN [None]
  - FATIGUE [None]
  - PALMAR-PLANTAR ERYTHRODYSAESTHESIA SYNDROME [None]
  - PAIN IN EXTREMITY [None]
  - VISUAL FIELD DEFECT [None]
